FAERS Safety Report 10572728 (Version 1)
Quarter: 2014Q4

REPORT INFORMATION
  Report Type: Spontaneous
  Country: US (occurrence: US)
  Receive Date: 20141110
  Receipt Date: 20141110
  Transmission Date: 20150529
  Serious: No
  Sender: FDA-Public Use
  Company Number: US-BIOGENIDEC-2014BI114816

PATIENT
  Sex: Female

DRUGS (1)
  1. TECFIDERA [Suspect]
     Active Substance: DIMETHYL FUMARATE
     Indication: MULTIPLE SCLEROSIS
     Route: 048
     Dates: start: 20141027

REACTIONS (5)
  - Rash [Unknown]
  - Tremor [Unknown]
  - Hypoaesthesia [Unknown]
  - Flushing [Unknown]
  - Anxiety [Unknown]

NARRATIVE: CASE EVENT DATE: 201410
